FAERS Safety Report 21407802 (Version 1)
Quarter: 2022Q4

REPORT INFORMATION
  Report Type: Spontaneous
  Country: JO (occurrence: JO)
  Receive Date: 20221004
  Receipt Date: 20221004
  Transmission Date: 20230113
  Serious: No
  Sender: FDA-Public Use
  Company Number: JO-PFIZER INC-PV202200075435

PATIENT

DRUGS (1)
  1. PAXLOVID [Suspect]
     Active Substance: NIRMATRELVIR\RITONAVIR
     Indication: COVID-19
     Dosage: UNK

REACTIONS (3)
  - Off label use [Unknown]
  - Intentional product misuse [Unknown]
  - Wrong technique in product usage process [Unknown]
